FAERS Safety Report 6828120-2 (Version None)
Quarter: 2010Q3

REPORT INFORMATION
  Report Type: 
  Country: None (occurrence: None)
  Receive Date: 20100708
  Receipt Date: 20100708
  Transmission Date: 20110219
  Serious: Yes (Death, Hospitalization)
  Sender: FDA-Public Use
  Company Number: None

PATIENT
  Age: 84 Year
  Sex: Female
  Weight: 90.7194 kg

DRUGS (1)
  1. FUROSEMIDE [Suspect]
     Indication: CARDIAC FAILURE CONGESTIVE
     Dosage: 40 MG 2 TIMES DAILY PO
     Route: 048
     Dates: start: 20100319, end: 20100510

REACTIONS (3)
  - CEREBROVASCULAR ACCIDENT [None]
  - DEHYDRATION [None]
  - RENAL FAILURE [None]
